FAERS Safety Report 7326450-1 (Version None)
Quarter: 2011Q1

REPORT INFORMATION
  Report Type: 
  Country: None (occurrence: None)
  Receive Date: 20110302
  Receipt Date: 20110228
  Transmission Date: 20110831
  Serious: Yes (Hospitalization)
  Sender: FDA-Public Use
  Company Number: CA-ABBOTT-11P-028-0708182-00

PATIENT
  Sex: Male
  Weight: 72.64 kg

DRUGS (3)
  1. CALCITE/VITAMIN D [Concomitant]
     Indication: ANKYLOSING SPONDYLITIS
     Route: 048
     Dates: start: 20000101
  2. HUMIRA [Suspect]
     Indication: ANKYLOSING SPONDYLITIS
     Route: 058
     Dates: start: 20071205
  3. MESALAMINE [Concomitant]
     Indication: COLITIS
     Route: 048
     Dates: start: 20000101

REACTIONS (4)
  - CARDIAC FAILURE [None]
  - CELLULITIS [None]
  - OEDEMA PERIPHERAL [None]
  - PULMONARY OEDEMA [None]
